FAERS Safety Report 5134473-6 (Version None)
Quarter: 2006Q4

REPORT INFORMATION
  Report Type: 
  Country: None (occurrence: None)
  Receive Date: 20061025
  Receipt Date: 20061017
  Transmission Date: 20070319
  Serious: Yes (Hospitalization)
  Sender: FDA-Public Use
  Company Number: US-PURDUE-USA_2006_0025425

PATIENT
  Age: 84 Year
  Sex: Female

DRUGS (1)
  1. OXYCONTIN [Suspect]
     Indication: DRUG USE FOR UNKNOWN INDICATION

REACTIONS (4)
  - AGGRESSION [None]
  - POOR PERSONAL HYGIENE [None]
  - REFUSAL OF TREATMENT BY PATIENT [None]
  - THERAPY NON-RESPONDER [None]
